FAERS Safety Report 17878834 (Version 3)
Quarter: 2020Q2

REPORT INFORMATION
  Report Type: Spontaneous
  Country: US (occurrence: US)
  Receive Date: 20200610
  Receipt Date: 20200618
  Transmission Date: 20200714
  Serious: No
  Sender: FDA-Public Use
  Company Number: US-BIOGEN-2020BI00884154

PATIENT
  Sex: Male

DRUGS (1)
  1. TYSABRI [Suspect]
     Active Substance: NATALIZUMAB
     Indication: MULTIPLE SCLEROSIS
     Route: 065
     Dates: start: 20200224

REACTIONS (6)
  - Multiple sclerosis [Unknown]
  - Product dose omission [Unknown]
  - Anxiety [Unknown]
  - Helplessness [Unknown]
  - Malaise [Unknown]
  - Inappropriate schedule of product administration [Unknown]
